FAERS Safety Report 13557826 (Version 2)
Quarter: 2017Q2

REPORT INFORMATION
  Report Type: Spontaneous
  Country: GB (occurrence: GB)
  Receive Date: 20170518
  Receipt Date: 20170521
  Transmission Date: 20170830
  Serious: Yes (Hospitalization)
  Sender: FDA-Public Use
  Company Number: GB-MYLANLABS-2017M1029617

PATIENT

DRUGS (4)
  1. CLOZARIL [Suspect]
     Active Substance: CLOZAPINE
     Indication: SCHIZOPHRENIA
     Dosage: UNK
     Route: 048
     Dates: start: 20160329
  2. CLOZARIL [Suspect]
     Active Substance: CLOZAPINE
     Dosage: 600 MG, PM
     Route: 048
  3. CLOZARIL [Suspect]
     Active Substance: CLOZAPINE
     Dosage: UNK
     Route: 048
     Dates: start: 201705
  4. CLOZARIL [Suspect]
     Active Substance: CLOZAPINE
     Dosage: 25 MG, UNK
     Route: 048
     Dates: start: 20170515

REACTIONS (3)
  - Mental disorder [Unknown]
  - Drug dose omission [Recovered/Resolved]
  - Constipation [Unknown]

NARRATIVE: CASE EVENT DATE: 201705
